FAERS Safety Report 23106785 (Version 1)
Quarter: 2023Q4

REPORT INFORMATION
  Report Type: Report from Study
  Country: US (occurrence: US)
  Receive Date: 20231026
  Receipt Date: 20231026
  Transmission Date: 20240110
  Serious: Yes (Hospitalization)
  Sender: FDA-Public Use
  Company Number: ENDG23-05526

PATIENT
  Age: 28 Year
  Sex: Female
  Weight: 104.31 kg

DRUGS (1)
  1. TREPROSTINIL [Suspect]
     Active Substance: TREPROSTINIL
     Indication: Pulmonary arterial hypertension
     Dosage: UNK UNKNOWN, INFUSION
     Route: 042
     Dates: end: 20230801

REACTIONS (12)
  - Heart rate increased [Recovered/Resolved]
  - Presyncope [Recovered/Resolved]
  - Dizziness [Recovered/Resolved]
  - Dermatitis contact [Unknown]
  - Flushing [Unknown]
  - Restless legs syndrome [Unknown]
  - Tremor [Not Recovered/Not Resolved]
  - Throat tightness [Unknown]
  - Decreased appetite [Not Recovered/Not Resolved]
  - Abdominal discomfort [Not Recovered/Not Resolved]
  - Diarrhoea [Unknown]
  - Headache [Not Recovered/Not Resolved]

NARRATIVE: CASE EVENT DATE: 20230801
